FAERS Safety Report 13431096 (Version 1)
Quarter: 2017Q2

REPORT INFORMATION
  Report Type: Spontaneous
  Country: US (occurrence: US)
  Receive Date: 20170411
  Receipt Date: 20170411
  Transmission Date: 20170830
  Serious: No
  Sender: FDA-Public Use
  Company Number: None

PATIENT
  Age: 64 Year
  Sex: Male
  Weight: 109.8 kg

DRUGS (1)
  1. HYDROMORPHONE [Suspect]
     Active Substance: HYDROMORPHONE
     Dates: start: 20110613, end: 20110613

REACTIONS (4)
  - Respiratory arrest [None]
  - Unresponsive to stimuli [None]
  - Dyspnoea [None]
  - Pulse absent [None]

NARRATIVE: CASE EVENT DATE: 20110613
